FAERS Safety Report 4898949-9 (Version None)
Quarter: 2006Q1

REPORT INFORMATION
  Report Type: 
  Country: None (occurrence: None)
  Receive Date: 20060202
  Receipt Date: 20051129
  Transmission Date: 20060701
  Serious: Yes (Hospitalization)
  Sender: FDA-Public Use
  Company Number: US-MERCK-0512USA00183

PATIENT
  Age: 78 Year
  Sex: Male
  Weight: 81 kg

DRUGS (8)
  1. VIOXX [Suspect]
     Indication: PAIN IN EXTREMITY
     Route: 048
     Dates: start: 20000601
  2. VIOXX [Suspect]
     Route: 048
     Dates: start: 20010301
  3. VIOXX [Suspect]
     Route: 048
     Dates: start: 20031201
  4. ASPIRIN [Concomitant]
     Route: 065
  5. PREVACID [Concomitant]
     Route: 065
  6. LIPITOR [Concomitant]
     Route: 065
  7. VITAMINS (UNSPECIFIED) [Concomitant]
     Route: 065
  8. GAVISCON ANTACID TABLETS [Concomitant]
     Route: 065

REACTIONS (6)
  - AORTIC VALVE STENOSIS [None]
  - CORONARY ARTERY DISEASE [None]
  - HYPERTENSION [None]
  - MUSCULOSKELETAL DISORDER [None]
  - MYOCARDIAL INFARCTION [None]
  - TRANSIENT ISCHAEMIC ATTACK [None]
